FAERS Safety Report 15455869 (Version 2)
Quarter: 2018Q4

REPORT INFORMATION
  Report Type: Spontaneous
  Country: JP (occurrence: JP)
  Receive Date: 20181002
  Receipt Date: 20181108
  Transmission Date: 20190204
  Serious: Yes (Hospitalization, Other)
  Sender: FDA-Public Use
  Company Number: JP-SA-2018SA208295

PATIENT
  Age: 74 Year
  Sex: Male
  Weight: 67.5 kg

DRUGS (25)
  1. ZALTRAP [Suspect]
     Active Substance: ZIV-AFLIBERCEPT
     Indication: COLON CANCER
     Dosage: 270 MG, 1X
     Route: 041
     Dates: start: 20180515, end: 20180515
  2. ALOXI [Concomitant]
     Active Substance: PALONOSETRON HYDROCHLORIDE
     Indication: PRODUCT USED FOR UNKNOWN INDICATION
     Dosage: UNK
     Route: 065
     Dates: start: 20180515, end: 20180515
  3. ZALTRAP [Suspect]
     Active Substance: ZIV-AFLIBERCEPT
     Dosage: 270 MG, 1X
     Route: 041
     Dates: start: 20180417, end: 20180417
  4. ZALTRAP [Suspect]
     Active Substance: ZIV-AFLIBERCEPT
     Dosage: 270 MG, 1X
     Route: 041
     Dates: start: 20180703, end: 20180703
  5. DEXAMETHASONE SODIUM PHOSPHATE. [Concomitant]
     Active Substance: DEXAMETHASONE SODIUM PHOSPHATE
     Indication: PRODUCT USED FOR UNKNOWN INDICATION
     Dosage: UNK
     Route: 065
     Dates: start: 20180515, end: 20180515
  6. CALCIUM LEVOFOLINATE [Concomitant]
     Active Substance: LEVOLEUCOVORIN CALCIUM
     Dosage: 370 MG, 1X
     Route: 042
     Dates: start: 20180731, end: 20180731
  7. IRINOTECAN [Concomitant]
     Active Substance: IRINOTECAN
     Dosage: 200 MG, 1X
     Route: 042
     Dates: start: 20180731, end: 20180731
  8. IRINOTECAN [Concomitant]
     Active Substance: IRINOTECAN
     Dosage: 200 MG, 1X
     Route: 042
     Dates: start: 20180417, end: 20180417
  9. IRINOTECAN [Concomitant]
     Active Substance: IRINOTECAN
     Dosage: 200 MG, 1X
     Route: 042
     Dates: start: 20180703, end: 20180703
  10. ZALTRAP [Suspect]
     Active Substance: ZIV-AFLIBERCEPT
     Dosage: 270 MG, 1X
     Route: 041
     Dates: start: 20180731, end: 20180731
  11. CALCIUM LEVOFOLINATE [Concomitant]
     Active Substance: LEVOLEUCOVORIN CALCIUM
     Dosage: 370 MG, 1X
     Route: 042
     Dates: start: 20180417, end: 20180417
  12. CALCIUM LEVOFOLINATE [Concomitant]
     Active Substance: LEVOLEUCOVORIN CALCIUM
     Dosage: 370 MG, 1X
     Route: 042
     Dates: start: 20180703, end: 20180703
  13. FLUOROURACIL. [Concomitant]
     Active Substance: FLUOROURACIL
     Indication: COLON CANCER
     Dosage: 3000 MG
     Route: 042
     Dates: start: 20180417, end: 20180419
  14. FLUOROURACIL. [Concomitant]
     Active Substance: FLUOROURACIL
     Dosage: 450 MG, 1X
     Route: 042
     Dates: start: 20180703, end: 20180703
  15. ALOXI [Concomitant]
     Active Substance: PALONOSETRON HYDROCHLORIDE
     Dosage: UNK
     Route: 065
     Dates: start: 20180417, end: 20180417
  16. ALOXI [Concomitant]
     Active Substance: PALONOSETRON HYDROCHLORIDE
     Dosage: UNK
     Route: 065
     Dates: start: 20180703, end: 20180703
  17. CALCIUM LEVOFOLINATE [Concomitant]
     Active Substance: LEVOLEUCOVORIN CALCIUM
     Indication: COLON CANCER
     Dosage: 370 MG, 1X
     Route: 042
     Dates: start: 20180515, end: 20180515
  18. IRINOTECAN [Concomitant]
     Active Substance: IRINOTECAN
     Indication: COLON CANCER
     Dosage: 200 MG, 1X
     Route: 042
     Dates: start: 20180515, end: 20180515
  19. FLUOROURACIL. [Concomitant]
     Active Substance: FLUOROURACIL
     Indication: COLON CANCER
     Dosage: 450 MG, 1X
     Route: 042
     Dates: start: 20180515, end: 20180515
  20. ALOXI [Concomitant]
     Active Substance: PALONOSETRON HYDROCHLORIDE
     Dosage: UNK
     Route: 065
     Dates: start: 20180731, end: 20180731
  21. DEXAMETHASONE SODIUM PHOSPHATE. [Concomitant]
     Active Substance: DEXAMETHASONE SODIUM PHOSPHATE
     Dosage: UNK
     Route: 065
     Dates: start: 20180703, end: 20180703
  22. DEXAMETHASONE SODIUM PHOSPHATE. [Concomitant]
     Active Substance: DEXAMETHASONE SODIUM PHOSPHATE
     Dosage: UNK
     Route: 065
     Dates: start: 20180731, end: 20180731
  23. FLUOROURACIL. [Concomitant]
     Active Substance: FLUOROURACIL
     Dosage: 450 MG, 1X
     Route: 042
     Dates: start: 20180417, end: 20180417
  24. FLUOROURACIL. [Concomitant]
     Active Substance: FLUOROURACIL
     Dosage: 450 MG, 1X
     Route: 042
     Dates: start: 20180731, end: 20180731
  25. DEXAMETHASONE SODIUM PHOSPHATE. [Concomitant]
     Active Substance: DEXAMETHASONE SODIUM PHOSPHATE
     Dosage: UNK
     Route: 065
     Dates: start: 20180417, end: 20180417

REACTIONS (4)
  - Renal impairment [Recovering/Resolving]
  - Diarrhoea [Recovering/Resolving]
  - Blood urine present [Not Recovered/Not Resolved]
  - Proteinuria [Not Recovered/Not Resolved]

NARRATIVE: CASE EVENT DATE: 20180515
